FAERS Safety Report 24767360 (Version 1)
Quarter: 2024Q4

REPORT INFORMATION
  Report Type: Spontaneous
  Country: US (occurrence: None)
  Receive Date: 20241220
  Receipt Date: 20241220
  Transmission Date: 20250115
  Serious: Yes (Death)
  Sender: Public
  Company Number: None

PATIENT
  Age: 52 Year
  Sex: Female
  Weight: 112.5 kg

DRUGS (6)
  1. VILAZODONE HYDROCHLORIDE [Suspect]
     Active Substance: VILAZODONE HYDROCHLORIDE
     Indication: Bipolar disorder
     Dosage: 30 TABLET(S) 1 PER DAY/ MEAL ORAL ?
     Route: 048
     Dates: start: 20230701, end: 20241003
  2. VILAZODONE [Concomitant]
     Active Substance: VILAZODONE
  3. ROSUVASTATIN [Concomitant]
     Active Substance: ROSUVASTATIN
  4. CYCLOBENZAPRINE [Concomitant]
     Active Substance: CYCLOBENZAPRINE
  5. LOSARTAN POTASSIUM [Concomitant]
     Active Substance: LOSARTAN POTASSIUM
  6. TEMAZEPAM [Concomitant]
     Active Substance: TEMAZEPAM

REACTIONS (8)
  - Dysphoria [None]
  - Feeling abnormal [None]
  - Formication [None]
  - Loss of personal independence in daily activities [None]
  - Unresponsive to stimuli [None]
  - Gun shot wound [None]
  - Limb injury [None]
  - Completed suicide [None]

NARRATIVE: CASE EVENT DATE: 20240201
